FAERS Safety Report 25202980 (Version 4)
Quarter: 2025Q3

REPORT INFORMATION
  Report Type: Report from Study
  Country: US (occurrence: US)
  Receive Date: 20250416
  Receipt Date: 20250811
  Transmission Date: 20251021
  Serious: No
  Sender: AVERITAS
  Company Number: US-GRUNENTHAL-2025-105342

PATIENT
  Age: 70 Year
  Sex: Male

DRUGS (2)
  1. QUTENZA [Suspect]
     Active Substance: CAPSAICIN
     Indication: Diabetic neuropathy
     Route: 061
     Dates: start: 20250403, end: 20250403
  2. QUTENZA [Suspect]
     Active Substance: CAPSAICIN
     Route: 061
     Dates: start: 20250721, end: 20250721

REACTIONS (3)
  - Application site warmth [Unknown]
  - Pain [Unknown]
  - Burning sensation [Recovered/Resolved]

NARRATIVE: CASE EVENT DATE: 20250403
